FAERS Safety Report 5274206-6 (Version None)
Quarter: 2007Q1

REPORT INFORMATION
  Report Type: 
  Country: None (occurrence: None)
  Receive Date: 20070323
  Receipt Date: 20070314
  Transmission Date: 20070707
  Serious: Yes (Death, Life-Threatening, Hospitalization, Other)
  Sender: FDA-Public Use
  Company Number: JP-ABBOTT-07P-087-0361301-00

PATIENT
  Age: 68 Year
  Sex: Female
  Weight: 40 kg

DRUGS (7)
  1. CLARITHROMYCIN [Suspect]
     Indication: PNEUMONIA
     Route: 048
     Dates: start: 20061117, end: 20061124
  2. ACYCLOVIR [Suspect]
     Indication: MENINGITIS
     Route: 042
     Dates: start: 20061201, end: 20061206
  3. ACYCLOVIR [Suspect]
     Indication: ENCEPHALITIS HERPES
  4. PHENOBARBITAL TAB [Suspect]
     Indication: CONVULSION
     Route: 030
     Dates: start: 20061115, end: 20061117
  5. CEFOZOPRAN HYDROCHLORIDE [Suspect]
     Indication: PNEUMONIA
     Route: 042
     Dates: start: 20061116, end: 20061116
  6. PIPERACILLIN SODIUM [Suspect]
     Indication: PNEUMONIA
     Route: 042
     Dates: start: 20061117, end: 20061124
  7. MEROPENEM HYDRATE [Suspect]
     Indication: SEPTIC SHOCK
     Route: 042
     Dates: start: 20061129, end: 20061227

REACTIONS (7)
  - BLISTER [None]
  - DRUG ERUPTION [None]
  - INTERVERTEBRAL DISC PROTRUSION [None]
  - MULTI-ORGAN FAILURE [None]
  - OCULAR HYPERAEMIA [None]
  - SEPTIC SHOCK [None]
  - SKIN EXFOLIATION [None]
